FAERS Safety Report 5391728-8 (Version None)
Quarter: 2007Q3

REPORT INFORMATION
  Report Type: 
  Country: None (occurrence: None)
  Receive Date: 20070717
  Receipt Date: 20070710
  Transmission Date: 20080115
  Serious: Yes (Death)
  Sender: FDA-Public Use
  Company Number: 430006307ITA

PATIENT
  Age: 69 Year
  Sex: Male

DRUGS (7)
  1. NOVANTRONE [Suspect]
     Dates: start: 20070616, end: 20070620
  2. GEMTUZUMAB OZOGAMICIN (GEMTUZUMAB OZOGAMICIN) [Suspect]
     Dosage: 10 MG
     Dates: start: 20070522, end: 20070608
  3. CYTARABINE [Suspect]
     Dates: start: 20070616, end: 20070620
  4. ETOPOSIDE [Suspect]
     Dates: start: 20070616, end: 20070620
  5. DOPAMINE /00360701/ [Concomitant]
  6. MORPHINE /00036301/ [Concomitant]
  7. PREDNISOLONE /00016201/ [Concomitant]

REACTIONS (1)
  - SEPTIC SHOCK [None]
